FAERS Safety Report 19172120 (Version 4)
Quarter: 2021Q3

REPORT INFORMATION
  Report Type: Spontaneous
  Country: DE (occurrence: DE)
  Receive Date: 20210423
  Receipt Date: 20210705
  Transmission Date: 20211014
  Serious: Yes (Hospitalization, Other)
  Sender: FDA-Public Use
  Company Number: DE-JNJFOC-20210428751

PATIENT
  Age: 78 Year
  Sex: Male
  Weight: 77 kg

DRUGS (9)
  1. NACL [Concomitant]
     Active Substance: SODIUM CHLORIDE
     Indication: PLASMA CELL MYELOMA
     Route: 065
     Dates: start: 20210331, end: 20210331
  2. PARACETAMOL [Concomitant]
     Active Substance: ACETAMINOPHEN
     Indication: PLASMA CELL MYELOMA
     Route: 048
     Dates: start: 20210331, end: 20210331
  3. DARZALEX [Suspect]
     Active Substance: DARATUMUMAB
     Indication: PLASMA CELL MYELOMA
     Route: 058
     Dates: start: 20210331, end: 20210331
  4. DEXAMETHASONE. [Suspect]
     Active Substance: DEXAMETHASONE
     Indication: PLASMA CELL MYELOMA
     Route: 065
  5. METAMIZOLE [Suspect]
     Active Substance: METAMIZOLE
     Route: 065
  6. MONTELUKAST [Concomitant]
     Active Substance: MONTELUKAST SODIUM
     Indication: PLASMA CELL MYELOMA
     Route: 048
     Dates: start: 20210331
  7. LENALIDOMIDE [Suspect]
     Active Substance: LENALIDOMIDE
     Indication: PLASMA CELL MYELOMA
     Route: 065
  8. DARZALEX [Suspect]
     Active Substance: DARATUMUMAB
     Route: 058
     Dates: start: 20210405, end: 20210421
  9. DIMENHYDRINATE. [Concomitant]
     Active Substance: DIMENHYDRINATE
     Indication: PLASMA CELL MYELOMA
     Route: 048
     Dates: start: 20210331, end: 20210331

REACTIONS (2)
  - Oedematous pancreatitis [Recovered/Resolved]
  - Leukopenia [Recovered/Resolved]

NARRATIVE: CASE EVENT DATE: 20210405
